FAERS Safety Report 13612180 (Version 2)
Quarter: 2017Q4

REPORT INFORMATION
  Report Type: Spontaneous
  Country: AR (occurrence: AR)
  Receive Date: 20170605
  Receipt Date: 20171220
  Transmission Date: 20180320
  Serious: Yes (Death)
  Sender: FDA-Public Use
  Company Number: AR-BAYER-2017-103449

PATIENT
  Age: 65 Year
  Sex: Male

DRUGS (2)
  1. STIVARGA [Suspect]
     Active Substance: REGORAFENIB
     Indication: COLORECTAL CANCER METASTATIC
     Dosage: 120 MG, QD
     Route: 048
     Dates: start: 201501, end: 201502
  2. STIVARGA [Suspect]
     Active Substance: REGORAFENIB
     Indication: COLORECTAL CANCER METASTATIC
     Dosage: 160 MG, QD
     Route: 048
     Dates: start: 201411

REACTIONS (3)
  - Palmar-plantar erythrodysaesthesia syndrome [None]
  - Colorectal cancer metastatic [Fatal]
  - Fatigue [None]

NARRATIVE: CASE EVENT DATE: 201502
